FAERS Safety Report 25919030 (Version 1)
Quarter: 2025Q4

REPORT INFORMATION
  Report Type: Spontaneous
  Country: US (occurrence: US)
  Receive Date: 20251014
  Receipt Date: 20251014
  Transmission Date: 20260118
  Serious: Yes (Hospitalization)
  Sender: ACCORD
  Company Number: US-MLMSERVICE-20250924-PI656827-00057-1

PATIENT
  Age: 69 Year
  Sex: Female
  Weight: 47 kg

DRUGS (6)
  1. ATORVASTATIN [Interacting]
     Active Substance: ATORVASTATIN
     Indication: Coronary artery disease
     Dosage: HIGH-DOSE
  2. COLCHICINE [Interacting]
     Active Substance: COLCHICINE
     Indication: Gout
  3. ASPIRIN [Concomitant]
     Active Substance: ASPIRIN
  4. METHIMAZOLE [Concomitant]
     Active Substance: METHIMAZOLE
  5. METOPROLOL [Concomitant]
     Active Substance: METOPROLOL
  6. ALLOPURINOL [Concomitant]
     Active Substance: ALLOPURINOL

REACTIONS (7)
  - Dysphagia [Recovered/Resolved]
  - Diarrhoea [Recovered/Resolved]
  - Malnutrition [Recovered/Resolved]
  - Muscle atrophy [Recovered/Resolved]
  - Abnormal loss of weight [Recovered/Resolved]
  - Drug interaction [Unknown]
  - Gastrointestinal mucosal disorder [Recovered/Resolved]
